FAERS Safety Report 12795885 (Version 2)
Quarter: 2016Q4

REPORT INFORMATION
  Report Type: Report from Study
  Country: US (occurrence: US)
  Receive Date: 20160929
  Receipt Date: 20161007
  Transmission Date: 20170207
  Serious: Yes (Other)
  Sender: FDA-Public Use
  Company Number: PHEH2016US024812

PATIENT
  Sex: Female

DRUGS (1)
  1. GILENYA [Suspect]
     Active Substance: FINGOLIMOD HYDROCHLORIDE
     Indication: MULTIPLE SCLEROSIS
     Dosage: 0.5 MG, QD
     Route: 048

REACTIONS (6)
  - Balance disorder [Unknown]
  - Feeling abnormal [Unknown]
  - Multiple sclerosis relapse [Unknown]
  - Gait disturbance [Unknown]
  - Dysarthria [Unknown]
  - Vision blurred [Unknown]
